FAERS Safety Report 17317222 (Version 1)
Quarter: 2020Q1

REPORT INFORMATION
  Report Type: Spontaneous
  Country: US (occurrence: US)
  Receive Date: 20200124
  Receipt Date: 20200124
  Transmission Date: 20200409
  Serious: No
  Sender: FDA-Public Use
  Company Number: US-OTSUKA-2019_025944

PATIENT
  Age: 59 Year
  Sex: Female

DRUGS (2)
  1. REXULTI [Suspect]
     Active Substance: BREXPIPRAZOLE
     Indication: MAJOR DEPRESSION
     Dosage: 2 MG, QD
     Route: 065
     Dates: start: 201801, end: 201905
  2. REXULTI [Suspect]
     Active Substance: BREXPIPRAZOLE
     Indication: ANXIETY

REACTIONS (3)
  - Product use in unapproved indication [Unknown]
  - Inability to afford medication [Unknown]
  - Disease recurrence [Not Recovered/Not Resolved]

NARRATIVE: CASE EVENT DATE: 201801
